FAERS Safety Report 16361413 (Version 1)
Quarter: 2019Q2

REPORT INFORMATION
  Report Type: Spontaneous
  Country: MY (occurrence: MY)
  Receive Date: 20190528
  Receipt Date: 20190528
  Transmission Date: 20190711
  Serious: Yes (Death)
  Sender: FDA-Public Use
  Company Number: MY-ROCHE-2327211

PATIENT
  Age: 75 Year
  Sex: Male

DRUGS (1)
  1. ACTILYSE [Suspect]
     Active Substance: ALTEPLASE
     Indication: ISCHAEMIC STROKE
     Route: 065
     Dates: start: 20190502

REACTIONS (1)
  - Cardiac disorder [Fatal]

NARRATIVE: CASE EVENT DATE: 20190502
